FAERS Safety Report 8840457 (Version 2)
Quarter: 2015Q3

REPORT INFORMATION
  Report Type: Report from Study
  Country: US (occurrence: US)
  Receive Date: 20121015
  Receipt Date: 20150814
  Transmission Date: 20151125
  Serious: Yes (Other)
  Sender: FDA-Public Use
  Company Number: US-ROCHE-1140325

PATIENT
  Sex: Female
  Weight: 46.9 kg

DRUGS (6)
  1. TYLENOL [Concomitant]
     Active Substance: ACETAMINOPHEN
  2. CYPROHEPTADINE. [Concomitant]
     Active Substance: CYPROHEPTADINE
     Route: 065
  3. PERIACTIN [Concomitant]
     Active Substance: CYPROHEPTADINE HYDROCHLORIDE
  4. PROTROPIN [Suspect]
     Active Substance: SOMATREM
     Indication: GROWTH HORMONE DEFICIENCY
     Dosage: 0.54 ML
     Route: 058
     Dates: start: 19951102
  5. PROTROPIN [Suspect]
     Active Substance: SOMATREM
     Route: 058
  6. PROTROPIN [Suspect]
     Active Substance: SOMATREM
     Route: 058

REACTIONS (2)
  - Cardiac disorder [Unknown]
  - Migraine [Unknown]
